FAERS Safety Report 21924237 (Version 1)
Quarter: 2023Q1

REPORT INFORMATION
  Report Type: Spontaneous
  Country: US (occurrence: US)
  Receive Date: 20230130
  Receipt Date: 20230130
  Transmission Date: 20230417
  Serious: No
  Sender: FDA-Public Use
  Company Number: US-STRIDES ARCOLAB LIMITED-2022SP012600

PATIENT
  Age: 29 Year
  Sex: Female

DRUGS (2)
  1. CABERGOLINE [Suspect]
     Active Substance: CABERGOLINE
     Indication: Inappropriate antidiuretic hormone secretion
     Dosage: 0.25 MILLIGRAM, BID
     Route: 065
  2. CABERGOLINE [Suspect]
     Active Substance: CABERGOLINE
     Dosage: 0.25 MILLIGRAM, 2 TIMES A WEEK (INSTRUCTIONS TO TAKE CABERGOLINE 0.25 MG TWICE WEEKLY AFTER THE FLUI
     Route: 065

REACTIONS (4)
  - Nausea [Unknown]
  - Constipation [Unknown]
  - Heavy menstrual bleeding [Unknown]
  - Anxiety [Unknown]
